FAERS Safety Report 25105442 (Version 1)
Quarter: 2025Q1

REPORT INFORMATION
  Report Type: Spontaneous
  Country: US (occurrence: US)
  Receive Date: 20250321
  Receipt Date: 20250321
  Transmission Date: 20250409
  Serious: Yes (Other)
  Sender: AMGEN
  Company Number: US-AMGEN-USASP2025054240

PATIENT
  Age: 71 Year
  Sex: Female

DRUGS (1)
  1. BEVACIZUMAB [Suspect]
     Active Substance: BEVACIZUMAB
     Indication: Arteriovenous fistula

REACTIONS (4)
  - Retinal haemorrhage [Unknown]
  - Venous stasis retinopathy [Unknown]
  - Glaucoma [Unknown]
  - Off label use [Unknown]
